FAERS Safety Report 7061930-8 (Version None)
Quarter: 2010Q4

REPORT INFORMATION
  Report Type: 
  Country: None (occurrence: None)
  Receive Date: 20101026
  Receipt Date: 20101021
  Transmission Date: 20110411
  Serious: Yes (Hospitalization)
  Sender: FDA-Public Use
  Company Number: US-MERCK-1010USA02703

PATIENT
  Age: 60 Year
  Sex: Female

DRUGS (3)
  1. FOSAMAX [Suspect]
     Route: 048
  2. ASPIRIN [Concomitant]
     Route: 065
  3. FERROUS SULFATE [Suspect]
     Route: 065

REACTIONS (2)
  - DEEP VEIN THROMBOSIS [None]
  - OESOPHAGEAL HAEMORRHAGE [None]
